FAERS Safety Report 5230489-X (Version None)
Quarter: 2007Q1

REPORT INFORMATION
  Report Type: 
  Country: None (occurrence: None)
  Receive Date: 20070202
  Receipt Date: 20070124
  Transmission Date: 20070707
  Serious: Yes (Other)
  Sender: FDA-Public Use
  Company Number: SUS-1-2006-09156

PATIENT
  Age: 11 Year
  Sex: Male

DRUGS (2)
  1. ADDERALL 10 [Suspect]
     Dosage: 1X/DAY:QD
  2. CONCERTA [Suspect]
     Dosage: 36 MG, 1X/DAY:QD

REACTIONS (9)
  - CEREBRAL INFARCTION [None]
  - CONFUSIONAL STATE [None]
  - DECREASED APPETITE [None]
  - DIPLOPIA [None]
  - FATIGUE [None]
  - MUSCULAR WEAKNESS [None]
  - SLEEP DISORDER [None]
  - SOMNOLENCE [None]
  - URINARY INCONTINENCE [None]
